FAERS Safety Report 10990046 (Version 5)
Quarter: 2015Q2

REPORT INFORMATION
  Report Type: Spontaneous
  Country: GB (occurrence: GB)
  Receive Date: 20150406
  Receipt Date: 20150605
  Transmission Date: 20150821
  Serious: Yes (Hospitalization)
  Sender: FDA-Public Use
  Company Number: GB-JNJFOC-20150322737

PATIENT
  Age: 2 Year
  Sex: Female
  Weight: 15.7 kg

DRUGS (1)
  1. CALPOL [Suspect]
     Active Substance: ACETAMINOPHEN
     Indication: ACCIDENTAL EXPOSURE TO PRODUCT
     Dosage: 100ML BOTTLE, 60-70ML
     Route: 048
     Dates: start: 20150318

REACTIONS (3)
  - Accidental exposure to product [Recovered/Resolved]
  - Accidental overdose [Recovered/Resolved]
  - Failure of child resistant mechanism for pharmaceutical product [Unknown]

NARRATIVE: CASE EVENT DATE: 20150318
